FAERS Safety Report 7024126-1 (Version None)
Quarter: 2010Q4

REPORT INFORMATION
  Report Type: 
  Country: None (occurrence: None)
  Receive Date: 20101001
  Receipt Date: 20100924
  Transmission Date: 20110411
  Serious: Yes (Other)
  Sender: FDA-Public Use
  Company Number: SE-JNJFOC-20100901325

PATIENT
  Sex: Female

DRUGS (2)
  1. PEVARYL [Suspect]
     Indication: FUNGAL INFECTION
     Dosage: APPLIES OCCASIONALLY
     Route: 067
  2. GYNO-PEVARYL [Suspect]
     Indication: FUNGAL INFECTION
     Route: 067

REACTIONS (3)
  - DEVICE DAMAGE [None]
  - DRUG EXPOSURE DURING PREGNANCY [None]
  - VAGINAL HAEMORRHAGE [None]
